FAERS Safety Report 15317332 (Version 20)
Quarter: 2019Q1

REPORT INFORMATION
  Report Type: Spontaneous
  Country: US (occurrence: US)
  Receive Date: 20180824
  Receipt Date: 20190305
  Transmission Date: 20190417
  Serious: Yes (Life-Threatening, Hospitalization)
  Sender: FDA-Public Use
  Company Number: US-ACTELION-A-US2018-177433

PATIENT
  Age: 69 Year
  Sex: Female
  Weight: 82.99 kg

DRUGS (14)
  1. VELETRI [Suspect]
     Active Substance: EPOPROSTENOL
     Dosage: 6 NG/KG, PER MIN
     Route: 042
     Dates: start: 20180730
  2. VELETRI [Suspect]
     Active Substance: EPOPROSTENOL
     Dosage: 10 NG/KG, PER MIN
     Route: 042
  3. OXYGEN. [Concomitant]
     Active Substance: OXYGEN
     Dosage: 2 L NASAL CANNULA
  4. ALLOPURINOL. [Concomitant]
     Active Substance: ALLOPURINOL
  5. VELETRI [Suspect]
     Active Substance: EPOPROSTENOL
     Dosage: UNK
     Route: 042
  6. ANAGRELIDE. [Concomitant]
     Active Substance: ANAGRELIDE HYDROCHLORIDE
     Dosage: 3 MG, BID
  7. FUROSEMIDE. [Concomitant]
     Active Substance: FUROSEMIDE
  8. TYVASO [Suspect]
     Active Substance: TREPROSTINIL
     Indication: PULMONARY ARTERIAL HYPERTENSION
     Dosage: 18-54 MCG
     Route: 045
     Dates: start: 20180315, end: 20180730
  9. GABAPENTIN. [Concomitant]
     Active Substance: GABAPENTIN
  10. VELETRI [Suspect]
     Active Substance: EPOPROSTENOL
     Dosage: 18 NG/KG, PER MIN
     Route: 042
  11. OMEPRAZOLE. [Concomitant]
     Active Substance: OMEPRAZOLE
     Indication: DYSPEPSIA
     Dosage: 20 MG, UNK
  12. ADCIRCA [Concomitant]
     Active Substance: TADALAFIL
     Indication: PRODUCT USED FOR UNKNOWN INDICATION
     Dosage: 40 MG, QD
     Route: 065
  13. VELETRI [Suspect]
     Active Substance: EPOPROSTENOL
     Indication: PULMONARY ARTERIAL HYPERTENSION
     Dosage: 23 NG/KG, PER MIN
     Route: 042
  14. OPSUMIT [Suspect]
     Active Substance: MACITENTAN
     Indication: PULMONARY ARTERIAL HYPERTENSION
     Dosage: 10 MG, UNK
     Route: 048
     Dates: end: 201808

REACTIONS (12)
  - Catheter management [Unknown]
  - Right ventricular failure [Recovering/Resolving]
  - Headache [Unknown]
  - Pain in jaw [Recovered/Resolved]
  - Device leakage [Recovered/Resolved]
  - Hospitalisation [Unknown]
  - Device damage [Unknown]
  - Diarrhoea [Recovered/Resolved]
  - Condition aggravated [Recovering/Resolving]
  - Dyspepsia [Unknown]
  - Device occlusion [Unknown]
  - Catheter site pruritus [Recovered/Resolved]

NARRATIVE: CASE EVENT DATE: 20180731
